FAERS Safety Report 8078087-7 (Version None)
Quarter: 2012Q1

REPORT INFORMATION
  Report Type: 
  Country: None (occurrence: None)
  Receive Date: 20120127
  Receipt Date: 20110110
  Transmission Date: 20120608
  Serious: No
  Sender: FDA-Public Use
  Company Number: US-ABBOTT-11P-163-0696202-00

PATIENT
  Sex: Female
  Weight: 87.622 kg

DRUGS (2)
  1. HUMIRA [Suspect]
     Indication: RHEUMATOID ARTHRITIS
     Dates: start: 20091101
  2. IBUPROFEN (ADVIL) [Concomitant]
     Indication: PAIN

REACTIONS (4)
  - NASAL CONGESTION [None]
  - SWELLING [None]
  - DRY MOUTH [None]
  - MUCOSAL DRYNESS [None]
